FAERS Safety Report 25661659 (Version 2)
Quarter: 2025Q3

REPORT INFORMATION
  Report Type: Report from Study
  Country: US (occurrence: US)
  Receive Date: 20250808
  Receipt Date: 20250918
  Transmission Date: 20251021
  Serious: Yes (Other)
  Sender: ALEXION PHARMACEUTICALS
  Company Number: US-AstraZeneca-CH-00926948A

PATIENT
  Age: 72 Year
  Sex: Female
  Weight: 120 kg

DRUGS (1)
  1. DAPAGLIFLOZIN [Suspect]
     Active Substance: DAPAGLIFLOZIN
     Indication: Diabetes mellitus
     Route: 065

REACTIONS (4)
  - Urinary retention [Unknown]
  - Nerve injury [Unknown]
  - Myopathy [Unknown]
  - Radiculopathy [Unknown]

NARRATIVE: CASE EVENT DATE: 20180401
